FAERS Safety Report 16358802 (Version 1)
Quarter: 2019Q2

REPORT INFORMATION
  Report Type: Spontaneous
  Country: US (occurrence: US)
  Receive Date: 20190527
  Receipt Date: 20190527
  Transmission Date: 20190711
  Serious: Yes (Other)
  Sender: FDA-Public Use
  Company Number: US-LEXICON PHARMACEUTICALS, INC-19-1606-00594

PATIENT
  Age: 65 Year
  Sex: Female

DRUGS (15)
  1. ASPIRIN. [Concomitant]
     Active Substance: ASPIRIN
  2. FEXOFENADINE [Concomitant]
     Active Substance: FEXOFENADINE\FEXOFENADINE HYDROCHLORIDE
  3. FLUTICASONE. [Concomitant]
     Active Substance: FLUTICASONE
  4. THIAMINE. [Concomitant]
     Active Substance: THIAMINE
  5. POTASSIUM CHLORIDE. [Concomitant]
     Active Substance: POTASSIUM CHLORIDE
  6. VITAMIN D [Concomitant]
     Active Substance: VITAMIN D NOS
  7. BRILINTA [Concomitant]
     Active Substance: TICAGRELOR
  8. LEVAQUIN [Concomitant]
     Active Substance: LEVOFLOXACIN
  9. MAGNESIUM [Concomitant]
     Active Substance: MAGNESIUM
  10. TELOTRISTAT ETHYL [Suspect]
     Active Substance: TELOTRISTAT ETHYL
     Indication: CARCINOID SYNDROME
     Route: 048
     Dates: start: 20180926
  11. NITROGLYCERIN. [Concomitant]
     Active Substance: NITROGLYCERIN
  12. RANEXA [Concomitant]
     Active Substance: RANOLAZINE
  13. VENLAFAXINE [Concomitant]
     Active Substance: VENLAFAXINE HYDROCHLORIDE
  14. SANDOSTATIN [Concomitant]
     Active Substance: OCTREOTIDE ACETATE
  15. KLOR-CON [Concomitant]
     Active Substance: POTASSIUM CHLORIDE

REACTIONS (3)
  - Cardiac valve disease [Unknown]
  - Catheterisation cardiac [Unknown]
  - Cough [Unknown]

NARRATIVE: CASE EVENT DATE: 201905
